FAERS Safety Report 6181807-X (Version None)
Quarter: 2009Q2

REPORT INFORMATION
  Report Type: 
  Country: None (occurrence: None)
  Receive Date: 20090506
  Receipt Date: 20090428
  Transmission Date: 20091009
  Serious: Yes (Hospitalization)
  Sender: FDA-Public Use
  Company Number: PHHY2009CA16615

PATIENT
  Sex: Male

DRUGS (2)
  1. ACLASTA [Suspect]
     Indication: OSTEOPOROSIS
     Dosage: UNK
     Dates: start: 20080411
  2. COUMADIN [Concomitant]
     Dosage: UNK
     Dates: start: 20080901

REACTIONS (4)
  - COMA [None]
  - PNEUMONECTOMY [None]
  - PULMONARY HAEMORRHAGE [None]
  - WEIGHT DECREASED [None]
